FAERS Safety Report 7236796-3 (Version None)
Quarter: 2011Q1

REPORT INFORMATION
  Report Type: 
  Country: None (occurrence: None)
  Receive Date: 20110120
  Receipt Date: 20110110
  Transmission Date: 20110831
  Serious: Yes (Death, Other)
  Sender: FDA-Public Use
  Company Number: TW-GENENTECH-312010

PATIENT
  Sex: Female

DRUGS (20)
  1. CYCLOPHOSPHAMIDE [Suspect]
     Indication: B-CELL LYMPHOMA
     Dosage: 1000 MG, UNK
     Route: 065
     Dates: start: 20080314
  2. NOVANTRONE [Suspect]
     Indication: B-CELL LYMPHOMA
     Dosage: UNK
     Route: 065
     Dates: start: 20080815
  3. RITUXIMAB [Suspect]
     Dosage: 600 MG, X4
     Route: 042
     Dates: start: 20080410
  4. CYCLOPHOSPHAMIDE [Suspect]
     Dosage: 1000 MG, UNK
     Route: 065
     Dates: start: 20080708
  5. VINCRISTINE [Suspect]
     Indication: B-CELL LYMPHOMA
     Dosage: 2 MG, UNK
     Route: 065
     Dates: start: 20080314
  6. RITUXIMAB [Suspect]
     Indication: B-CELL LYMPHOMA
     Dosage: 600 MG, X4
     Route: 042
     Dates: start: 20080314
  7. RITUXIMAB [Suspect]
     Dosage: 600 MG, X4
     Route: 042
     Dates: start: 20080708
  8. PREDNISONE [Suspect]
     Dosage: 60 MG, UNK
     Route: 048
     Dates: start: 20080410
  9. PREDNISONE [Suspect]
     Dosage: 60 MG, UNK
     Route: 048
     Dates: start: 20080508
  10. PREDNISONE [Suspect]
     Dosage: 60 MG, UNK
     Route: 048
     Dates: start: 20080708
  11. MESNA [Suspect]
     Indication: B-CELL LYMPHOMA
     Dosage: UNK
     Route: 065
     Dates: start: 20080815
  12. ETOPOSIDE [Suspect]
     Indication: B-CELL LYMPHOMA
     Dosage: UNK
     Route: 065
     Dates: start: 20080815
  13. CYCLOPHOSPHAMIDE [Suspect]
     Dosage: 1000 MG, UNK
     Route: 065
     Dates: start: 20080410
  14. VINCRISTINE [Suspect]
     Dosage: 2 MG, UNK
     Route: 065
     Dates: start: 20080508
  15. RITUXIMAB [Suspect]
     Dosage: 600 MG, X4
     Route: 042
     Dates: start: 20080815
  16. ISOPHOSPHAMIDE [Suspect]
     Indication: B-CELL LYMPHOMA
     Dosage: UNK
     Route: 065
     Dates: start: 20080815
  17. VINCRISTINE [Suspect]
     Dosage: 2 MG, UNK
     Route: 065
     Dates: start: 20080410
  18. VINCRISTINE [Suspect]
     Dosage: 2 MG, UNK
     Route: 065
     Dates: start: 20080708
  19. CYCLOPHOSPHAMIDE [Suspect]
     Dosage: 1000 MG, UNK
     Route: 065
     Dates: start: 20080508
  20. PREDNISONE [Suspect]
     Indication: B-CELL LYMPHOMA
     Dosage: 60 MG, UNK
     Route: 048
     Dates: start: 20080314

REACTIONS (4)
  - FEBRILE NEUTROPENIA [None]
  - VAGINAL HAEMORRHAGE [None]
  - LYMPHOMA [None]
  - PNEUMONIA [None]
